FAERS Safety Report 24014484 (Version 1)
Quarter: 2024Q2

REPORT INFORMATION
  Report Type: Spontaneous
  Country: JP (occurrence: JP)
  Receive Date: 20240626
  Receipt Date: 20240626
  Transmission Date: 20240716
  Serious: Yes (Hospitalization)
  Sender: FDA-Public Use
  Company Number: JP-CHEPLA-2024007419

PATIENT
  Age: 78 Year
  Sex: Male

DRUGS (3)
  1. GANCICLOVIR [Suspect]
     Active Substance: GANCICLOVIR
     Indication: Necrotising retinitis
     Route: 050
  2. VALGANCICLOVIR [Suspect]
     Active Substance: VALGANCICLOVIR
     Indication: Necrotising retinitis
     Route: 048
  3. PREDNISOLONE [Concomitant]
     Active Substance: PREDNISOLONE
     Indication: Prostate cancer
     Route: 065

REACTIONS (2)
  - Pancytopenia [Unknown]
  - Off label use [Unknown]
